FAERS Safety Report 5153554-4 (Version None)
Quarter: 2006Q4

REPORT INFORMATION
  Report Type: 
  Country: None (occurrence: None)
  Receive Date: 20061113
  Receipt Date: 20061026
  Transmission Date: 20070319
  Serious: Yes (Hospitalization, Other)
  Sender: FDA-Public Use
  Company Number: 2006RR-04245

PATIENT
  Age: 52 Year
  Sex: Male

DRUGS (4)
  1. ASPIRIN [Suspect]
     Indication: MYOCARDIAL ISCHAEMIA
     Dosage: 75 MG, QD, ORAL
     Route: 048
     Dates: start: 20050101, end: 20060823
  2. ETODOLAC [Suspect]
     Indication: BACK PAIN
     Dosage: 300 MG, BID, ORAL
     Route: 048
     Dates: start: 20010101, end: 20060823
  3. DIHYDROCODEINE COMPOUND [Concomitant]
  4. PREGABALIN [Concomitant]

REACTIONS (1)
  - HAEMATEMESIS [None]
